FAERS Safety Report 5736163-5 (Version None)
Quarter: 2008Q2

REPORT INFORMATION
  Report Type: 
  Country: None (occurrence: None)
  Receive Date: 20080509
  Receipt Date: 20080509
  Transmission Date: 20081010
  Serious: Yes (Hospitalization, Other)
  Sender: FDA-Public Use
  Company Number: None

PATIENT
  Age: 62 Year
  Sex: Male

DRUGS (1)
  1. HYZAAR [Suspect]
     Dosage: 100/25 PO DAILY
     Route: 048
     Dates: start: 20070201, end: 20070828

REACTIONS (2)
  - DYSPNOEA [None]
  - SWOLLEN TONGUE [None]
